FAERS Safety Report 17845479 (Version 4)
Quarter: 2020Q2

REPORT INFORMATION
  Report Type: Spontaneous
  Country: CO (occurrence: CO)
  Receive Date: 20200601
  Receipt Date: 20200620
  Transmission Date: 20200714
  Serious: Yes (Life-Threatening, Disabling, Other)
  Sender: FDA-Public Use
  Company Number: NVSC2020CO147133

PATIENT
  Age: 57 Year
  Sex: Male
  Weight: 68 kg

DRUGS (8)
  1. LAMPRENE [Suspect]
     Active Substance: CLOFAZIMINE
     Indication: LEPROSY
     Dosage: UNK
     Route: 065
  2. RIFAMPICIN [Suspect]
     Active Substance: RIFAMPIN
     Indication: LEPROSY
  3. THIAMINE. [Concomitant]
     Active Substance: THIAMINE
     Indication: PRODUCT USED FOR UNKNOWN INDICATION
     Dosage: UNK
     Route: 065
  4. LAMPRENE [Suspect]
     Active Substance: CLOFAZIMINE
     Indication: LEPROMATOUS LEPROSY
     Dosage: 100 MG, QD
     Route: 048
  5. DAPSONE. [Suspect]
     Active Substance: DAPSONE
     Indication: LEPROSY
  6. LAMPRENE [Suspect]
     Active Substance: CLOFAZIMINE
     Dosage: 50 MG, QD
     Route: 048
     Dates: start: 20190607, end: 20200504
  7. DAPSONE. [Suspect]
     Active Substance: DAPSONE
     Indication: LEPROMATOUS LEPROSY
     Dosage: 100 MG, QD
     Route: 048
     Dates: start: 20190607, end: 20200504
  8. RIFAMPICIN [Suspect]
     Active Substance: RIFAMPIN
     Indication: LEPROMATOUS LEPROSY
     Dosage: 100 MG, QD
     Route: 048
     Dates: start: 20190607, end: 20200504

REACTIONS (37)
  - Insomnia [Not Recovered/Not Resolved]
  - Pain [Unknown]
  - Anaemia [Not Recovered/Not Resolved]
  - Haemolytic anaemia [Unknown]
  - Depressed mood [Unknown]
  - Disturbance in attention [Unknown]
  - Weight decreased [Not Recovered/Not Resolved]
  - Confusional state [Not Recovered/Not Resolved]
  - Lepromatous leprosy [Not Recovered/Not Resolved]
  - Disease progression [Unknown]
  - Speech disorder [Unknown]
  - Nervousness [Unknown]
  - Constipation [Unknown]
  - Thyroid disorder [Not Recovered/Not Resolved]
  - Pain of skin [Not Recovered/Not Resolved]
  - Skin disorder [Unknown]
  - Anxiety disorder [Unknown]
  - Dysarthria [Unknown]
  - Myalgia [Unknown]
  - Tremor [Unknown]
  - Malaise [Unknown]
  - Asthenia [Not Recovered/Not Resolved]
  - Nervous system disorder [Not Recovered/Not Resolved]
  - Bacillus infection [Unknown]
  - Migraine [Unknown]
  - Musculoskeletal pain [Unknown]
  - Lethargy [Not Recovered/Not Resolved]
  - C-reactive protein [Unknown]
  - Haemoglobin decreased [Unknown]
  - Fatigue [Unknown]
  - Depression [Not Recovered/Not Resolved]
  - Psychotic symptom [Unknown]
  - Eosinophil percentage increased [Unknown]
  - Drug ineffective [Unknown]
  - Autonomic nervous system imbalance [Not Recovered/Not Resolved]
  - Blood uric acid [Unknown]
  - Urinary incontinence [Unknown]

NARRATIVE: CASE EVENT DATE: 20190905
